FAERS Safety Report 10121372 (Version 2)
Quarter: 2014Q2

REPORT INFORMATION
  Report Type: Spontaneous
  Country: AT (occurrence: AT)
  Receive Date: 20140425
  Receipt Date: 20140430
  Transmission Date: 20141212
  Serious: Yes (Hospitalization)
  Sender: FDA-Public Use
  Company Number: AT-ASTRAZENECA-2014SE26482

PATIENT
  Sex: Female

DRUGS (11)
  1. ACECOMB [Suspect]
     Route: 048
     Dates: end: 20040429
  2. MIRTABENE [Suspect]
     Route: 048
     Dates: start: 20040406, end: 20040517
  3. EFFECTIN [Suspect]
     Route: 048
     Dates: end: 20040427
  4. EFFECTIN [Suspect]
     Route: 048
     Dates: start: 20040428, end: 20040503
  5. EFFECTIN [Suspect]
     Route: 048
     Dates: start: 20040508, end: 20040509
  6. RISPERDAL [Suspect]
     Route: 048
     Dates: start: 20040406, end: 20040510
  7. RISPERDAL [Suspect]
     Route: 048
     Dates: start: 20040511, end: 20040517
  8. NORVASC [Concomitant]
     Route: 048
     Dates: end: 20040503
  9. PRAVACHOL [Concomitant]
     Route: 048
     Dates: end: 20040517
  10. ASA [Concomitant]
     Route: 048
     Dates: end: 20040517
  11. XANOR [Concomitant]
     Route: 048
     Dates: end: 20040517

REACTIONS (1)
  - Hyponatraemia [Recovered/Resolved]
